FAERS Safety Report 9619571 (Version 1)
Quarter: 2013Q4

REPORT INFORMATION
  Report Type: Spontaneous
  Country: BE (occurrence: BE)
  Receive Date: 20131014
  Receipt Date: 20131014
  Transmission Date: 20140711
  Serious: Yes (Hospitalization)
  Sender: FDA-Public Use
  Company Number: BE-INCYTE CORPORATION-2013IN002346

PATIENT
  Age: 68 Year
  Sex: Male

DRUGS (10)
  1. JAKAVI [Suspect]
     Dosage: NOT SPECIFIED
     Route: 065
  2. PNEUMOCOCCAL 13-VALENT CONJUGATE VACCINE [Suspect]
     Indication: IMMUNISATION
     Dosage: NOT SPECIFIED, SINGLE DOSE
     Route: 030
     Dates: start: 20100903, end: 20100903
  3. PNEUMOCOCCAL 13-VALENT CONJUGATE VACCINE [Suspect]
     Dosage: NOT SPECIFIED, SINGLE DOSE
     Route: 030
     Dates: start: 20101012, end: 20101012
  4. PNEUMOCOCCAL 13-VALENT CONJUGATE VACCINE [Suspect]
     Dosage: NOT SPECIFIED, SINGLE DOSE
     Route: 030
     Dates: start: 20101109, end: 20101109
  5. PNEUMOCOCCAL 13-VALENT CONJUGATE VACCINE [Suspect]
     Dosage: NOT SPECIFIED, SINGLE DOSE
     Route: 030
     Dates: start: 20110516, end: 20110516
  6. PNEUMOCOCCAL 23 VALENT POLYSACCHARIDE VACCINE [Suspect]
     Indication: IMMUNISATION
     Dosage: NOT SPECIFIED, SINGLE DOSE
     Route: 030
     Dates: start: 20110627, end: 20110627
  7. INFLUENZA VIRUS VACCINE TRIVALENT TYPE A+B [Suspect]
     Indication: IMMUNISATION
     Dosage: NOT SPECIFIED, SINGLE
     Route: 065
     Dates: start: 201201, end: 201201
  8. DIPHTHERIA, TETANUS TOXOIDS AND ACELLULAR PERTUSSIS VACCINE [Suspect]
     Indication: IMMUNISATION
     Dosage: NOT SPECIFIED,  SINGLE
     Route: 065
     Dates: start: 201201, end: 201201
  9. POLIOMYELITIS VACCINE INACTIVATED [Suspect]
     Indication: IMMUNISATION
     Dosage: NOT SPECIFIED, SINGLE
     Route: 065
     Dates: start: 201201, end: 201201
  10. HAEMOPHILUS B CONJUGATE VACCINE [Suspect]
     Indication: IMMUNISATION
     Dosage: NOT SPECIFIED,  SINGLE
     Route: 065
     Dates: start: 201201, end: 201201

REACTIONS (1)
  - Glomerulonephritis membranoproliferative [Unknown]
